FAERS Safety Report 14413800 (Version 1)
Quarter: 2018Q1

REPORT INFORMATION
  Report Type: Spontaneous
  Country: US (occurrence: US)
  Receive Date: 20180117
  Receipt Date: 20180117
  Transmission Date: 20180509
  Serious: No
  Sender: FDA-Public Use
  Company Number: None

PATIENT
  Age: 51 Year
  Sex: Male

DRUGS (1)
  1. STELARA [Suspect]
     Active Substance: USTEKINUMAB
     Dosage: STELARA 90MG EVERY 12 WEE SQ
     Route: 058

REACTIONS (1)
  - Pruritus [None]

NARRATIVE: CASE EVENT DATE: 20180117
